FAERS Safety Report 7570352-2 (Version None)
Quarter: 2011Q2

REPORT INFORMATION
  Report Type: 
  Country: None (occurrence: None)
  Receive Date: 20110624
  Receipt Date: 20110609
  Transmission Date: 20111010
  Serious: Yes (Hospitalization)
  Sender: FDA-Public Use
  Company Number: GB-WATSON-2011-09151

PATIENT
  Age: 50 Year
  Sex: Female
  Weight: 137 kg

DRUGS (2)
  1. LOSARTAN POTASSIUM [Suspect]
     Indication: INTENTIONAL OVERDOSE
     Dosage: 16640 MG, SINGLE
     Route: 048
  2. AMLODIPINE [Suspect]
     Indication: INTENTIONAL OVERDOSE
     Dosage: 770 MG, SINGLE
     Route: 048

REACTIONS (6)
  - HEART RATE INCREASED [None]
  - RENAL FAILURE [None]
  - HYPOXIA [None]
  - OVERDOSE [None]
  - BLOOD PRESSURE DECREASED [None]
  - PULMONARY OEDEMA [None]
